FAERS Safety Report 18022150 (Version 2)
Quarter: 2020Q3

REPORT INFORMATION
  Report Type: Spontaneous
  Country: HR (occurrence: HR)
  Receive Date: 20200714
  Receipt Date: 20200716
  Transmission Date: 20201103
  Serious: Yes (Other)
  Sender: FDA-Public Use
  Company Number: HR-MYLANLABS-2020M1063927

PATIENT
  Age: 37 Year
  Sex: Female
  Weight: 48 kg

DRUGS (1)
  1. FEVARIN [Suspect]
     Active Substance: FLUVOXAMINE MALEATE
     Indication: ADJUSTMENT DISORDER
     Dosage: 50 MILLIGRAM, QD
     Route: 048
     Dates: start: 20200108, end: 20200110

REACTIONS (6)
  - Dysmenorrhoea [Recovered/Resolved]
  - Genital haemorrhage [Recovered/Resolved]
  - Asthenia [Recovered/Resolved]
  - Vertigo [Recovered/Resolved]
  - Nausea [Recovered/Resolved]
  - Memory impairment [Recovered/Resolved]

NARRATIVE: CASE EVENT DATE: 20200109
